FAERS Safety Report 12265678 (Version 1)
Quarter: 2016Q2

REPORT INFORMATION
  Report Type: Spontaneous
  Country: JP (occurrence: JP)
  Receive Date: 20160413
  Receipt Date: 20160413
  Transmission Date: 20160815
  Serious: Yes (Other)
  Sender: FDA-Public Use
  Company Number: JP-PFIZER INC-2016197454

PATIENT
  Age: 24 Year
  Sex: Female

DRUGS (13)
  1. 6-MP [Suspect]
     Active Substance: MERCAPTOPURINE
     Indication: ACUTE PROMYELOCYTIC LEUKAEMIA
     Dosage: UNK
     Dates: start: 201401
  2. IDARUBICIN HCL [Suspect]
     Active Substance: IDARUBICIN HYDROCHLORIDE
     Dosage: ATRA + IDR
  3. METHOTREXATE SODIUM. [Suspect]
     Active Substance: METHOTREXATE SODIUM
     Dosage: ATRA + MTX
     Dates: start: 201401
  4. DAUNORUBICIN HCL [Suspect]
     Active Substance: DAUNORUBICIN HYDROCHLORIDE
     Dosage: ATRA + DNR + HDCA
  5. TRETINOIN. [Suspect]
     Active Substance: TRETINOIN
     Dosage: ATRA + MIT
  6. TRETINOIN. [Suspect]
     Active Substance: TRETINOIN
     Dosage: ATRA + IDR
  7. CYTARABINE. [Suspect]
     Active Substance: CYTARABINE
     Indication: ACUTE PROMYELOCYTIC LEUKAEMIA
     Dosage: HIGH-DOSE (ATRA + DNR + HDCA)
  8. PREDNISOLONE. [Suspect]
     Active Substance: PREDNISOLONE
     Indication: ACUTE PROMYELOCYTIC LEUKAEMIA
     Dosage: 4 TIMES OF INTRATHECAL CHEMOTHERAPY (MTX + ARA-C + PSL )
     Route: 037
  9. METHOTREXATE SODIUM. [Suspect]
     Active Substance: METHOTREXATE SODIUM
     Indication: ACUTE PROMYELOCYTIC LEUKAEMIA
     Dosage: 4 TIMES OF INTRATHECAL CHEMOTHERAPY (MTX + ARA-C + PSL )
     Route: 037
  10. TRETINOIN. [Suspect]
     Active Substance: TRETINOIN
     Indication: ACUTE PROMYELOCYTIC LEUKAEMIA
     Dosage: ATRA + DNR + HDCA
  11. TRETINOIN. [Suspect]
     Active Substance: TRETINOIN
     Dosage: ATRA + MTX
     Dates: start: 201401
  12. CYTARABINE. [Suspect]
     Active Substance: CYTARABINE
     Dosage: 4 TIMES OF INTRATHECAL CHEMOTHERAPY (MTX + ARA-C + PSL )
     Route: 037
  13. MITOXANTRONE HYDROCHLORIDE. [Suspect]
     Active Substance: MITOXANTRONE HYDROCHLORIDE
     Indication: ACUTE PROMYELOCYTIC LEUKAEMIA
     Dosage: ATRA + MIT

REACTIONS (1)
  - Acute myeloid leukaemia [Recovered/Resolved]
